FAERS Safety Report 8347237-7 (Version None)
Quarter: 2012Q2

REPORT INFORMATION
  Report Type: 
  Country: None (occurrence: None)
  Receive Date: 20120509
  Receipt Date: 20120430
  Transmission Date: 20120825
  Serious: Yes (Other)
  Sender: FDA-Public Use
  Company Number: US-ASTRAZENECA-2011SE77522

PATIENT
  Age: 84 Year
  Sex: Female

DRUGS (1)
  1. TOPROL-XL [Suspect]
     Route: 048

REACTIONS (4)
  - RENAL CANCER [None]
  - CONFUSIONAL STATE [None]
  - MYOCARDIAL INFARCTION [None]
  - ARTHRITIS [None]
